FAERS Safety Report 17345864 (Version 1)
Quarter: 2020Q1

REPORT INFORMATION
  Report Type: Spontaneous
  Country: US (occurrence: US)
  Receive Date: 20200114
  Receipt Date: 20200114
  Transmission Date: 20200409
  Serious: Yes (Hospitalization)
  Sender: FDA-Public Use
  Company Number: None

PATIENT
  Sex: Female

DRUGS (1)
  1. VIGABATRIN POWDER 500MG PAR [Suspect]
     Active Substance: VIGABATRIN
     Indication: EPILEPSY
     Dosage: ?          OTHER DOSE:614/500 MG;OTHER FREQUENCY:AM/PM; 624 MG AN AM 500 MG IN EVENING?
     Route: 048
     Dates: start: 20191122

REACTIONS (3)
  - Vomiting [None]
  - Screaming [None]
  - Product substitution issue [None]
